FAERS Safety Report 6955930-3 (Version None)
Quarter: 2010Q3

REPORT INFORMATION
  Report Type: 
  Country: None (occurrence: None)
  Receive Date: 20100826
  Receipt Date: 20100826
  Transmission Date: 20110219
  Serious: Yes (Other)
  Sender: FDA-Public Use
  Company Number: None

PATIENT
  Sex: Male
  Weight: 86.8 kg

DRUGS (5)
  1. XOLAIR [Suspect]
     Indication: ASTHMA
     Dosage: 375MG Q2WEEKS SQ
     Route: 058
     Dates: start: 20050601, end: 20100613
  2. ADVAIR DISKUS -FLUTICASONE/SALMETEROL- [Concomitant]
  3. ALBUTEROL [Concomitant]
  4. NEBS [Concomitant]
  5. NASONEX -MOMETASONE- NASAL SPRAY [Concomitant]

REACTIONS (1)
  - CONGESTIVE CARDIOMYOPATHY [None]
